FAERS Safety Report 25416811 (Version 2)
Quarter: 2025Q2

REPORT INFORMATION
  Report Type: Spontaneous
  Country: IT (occurrence: IT)
  Receive Date: 20250610
  Receipt Date: 20250616
  Transmission Date: 20250717
  Serious: Yes (Hospitalization)
  Sender: MYLAN
  Company Number: IT-MYLANLABS-2025M1048724

PATIENT
  Age: 59 Year
  Sex: Male

DRUGS (12)
  1. VERAPAMIL [Suspect]
     Active Substance: VERAPAMIL HYDROCHLORIDE
     Indication: Angina pectoris
  2. VERAPAMIL [Suspect]
     Active Substance: VERAPAMIL HYDROCHLORIDE
     Route: 065
  3. VERAPAMIL [Suspect]
     Active Substance: VERAPAMIL HYDROCHLORIDE
     Route: 065
  4. VERAPAMIL [Suspect]
     Active Substance: VERAPAMIL HYDROCHLORIDE
  5. NITROGLYCERIN [Suspect]
     Active Substance: NITROGLYCERIN
     Indication: Prinzmetal angina
  6. NITROGLYCERIN [Suspect]
     Active Substance: NITROGLYCERIN
     Route: 062
  7. NITROGLYCERIN [Suspect]
     Active Substance: NITROGLYCERIN
     Route: 062
  8. NITROGLYCERIN [Suspect]
     Active Substance: NITROGLYCERIN
  9. RANOLAZINE [Suspect]
     Active Substance: RANOLAZINE
     Indication: Prinzmetal angina
  10. RANOLAZINE [Suspect]
     Active Substance: RANOLAZINE
     Route: 065
  11. RANOLAZINE [Suspect]
     Active Substance: RANOLAZINE
     Route: 065
  12. RANOLAZINE [Suspect]
     Active Substance: RANOLAZINE

REACTIONS (1)
  - Drug ineffective [Unknown]
